FAERS Safety Report 20304382 (Version 2)
Quarter: 2022Q1

REPORT INFORMATION
  Report Type: Spontaneous
  Country: PT (occurrence: PT)
  Receive Date: 20220106
  Receipt Date: 20220111
  Transmission Date: 20220424
  Serious: Yes (Hospitalization, Other)
  Sender: FDA-Public Use
  Company Number: PT-ABBVIE-19P-130-2844638-00

PATIENT
  Age: 39 Year
  Sex: Male

DRUGS (7)
  1. ADALIMUMAB [Suspect]
     Active Substance: ADALIMUMAB
     Indication: Axial spondyloarthritis
     Dosage: 1 DOSAGE FORM, Q2W
     Route: 058
  2. ADALIMUMAB [Suspect]
     Active Substance: ADALIMUMAB
     Dosage: 40 MILLIGRAM, Q2W
  3. SECUKINUMAB [Suspect]
     Active Substance: SECUKINUMAB
     Indication: Relapsing-remitting multiple sclerosis
     Dosage: 300 MILLIGRAM, MONTHLY
     Route: 058
  4. ACEMETACIN [Concomitant]
     Active Substance: ACEMETACIN
     Indication: Axial spondyloarthritis
     Dosage: 90 MILLIGRAM, QD
     Route: 065
  5. ACEMETACIN [Concomitant]
     Active Substance: ACEMETACIN
     Indication: Ankylosing spondylitis
     Dosage: 150 MILLIGRAM, QD
     Route: 065
  6. ACEMETACIN [Concomitant]
     Active Substance: ACEMETACIN
     Dosage: UNK
     Route: 065
  7. DIMETHYL FUMARATE [Concomitant]
     Active Substance: DIMETHYL FUMARATE
     Indication: Relapsing-remitting multiple sclerosis
     Dosage: 240 MILLIGRAM, QD
     Route: 065

REACTIONS (3)
  - Optic neuritis [Unknown]
  - Relapsing-remitting multiple sclerosis [Unknown]
  - Off label use [Unknown]
